FAERS Safety Report 5176894-1 (Version None)
Quarter: 2006Q4

REPORT INFORMATION
  Report Type: 
  Country: None (occurrence: None)
  Receive Date: 20061212
  Receipt Date: 20061212
  Transmission Date: 20070319
  Serious: Yes (Other)
  Sender: FDA-Public Use
  Company Number: None

PATIENT
  Age: 43 Year
  Sex: Female
  Weight: 58.9676 kg

DRUGS (1)
  1. LEUKINE [Suspect]
     Indication: CERVIX CARCINOMA
     Dosage: 400 MCG DAILY SQ
     Route: 058
     Dates: start: 20061020

REACTIONS (3)
  - CHEST PAIN [None]
  - DYSPNOEA [None]
  - GENERALISED ERYTHEMA [None]
